FAERS Safety Report 10100971 (Version 2)
Quarter: 2014Q2

REPORT INFORMATION
  Report Type: Report from Study
  Country: AU (occurrence: AU)
  Receive Date: 20140424
  Receipt Date: 20140424
  Transmission Date: 20141212
  Serious: Yes (Other)
  Sender: FDA-Public Use
  Company Number: AU-ACCORD-023280

PATIENT
  Age: 56 Year
  Sex: Female

DRUGS (3)
  1. VINORELBINE [Suspect]
     Indication: PERIPHERAL T-CELL LYMPHOMA UNSPECIFIED
     Dosage: C1, D1 VGF - VINORELBINE 25MG/M2?(D1,D8 Q21D)
  2. GEMCITABINE/GEMCITABINE HYDROCHLORIDE [Suspect]
     Indication: PERIPHERAL T-CELL LYMPHOMA UNSPECIFIED
     Dosage: C1, D1 VGF - GEMCITABINE 1G/M2 (DOSE?REDUCED TO 67%) ?(D1,D8 Q21D)
  3. PREDNISOLONE [Suspect]
     Indication: PERIPHERAL T-CELL LYMPHOMA UNSPECIFIED

REACTIONS (1)
  - Pneumocystis jirovecii pneumonia [Recovering/Resolving]
